FAERS Safety Report 6583637-3 (Version None)
Quarter: 2010Q1

REPORT INFORMATION
  Report Type: 
  Country: None (occurrence: None)
  Receive Date: 20100216
  Receipt Date: 20100201
  Transmission Date: 20100710
  Serious: Yes (Life-Threatening)
  Sender: FDA-Public Use
  Company Number: FR-SANOFI-AVENTIS-2010SA005662

PATIENT
  Age: 63 Year
  Sex: Female

DRUGS (4)
  1. MEPRONIZINE [Suspect]
     Indication: MULTIPLE DRUG OVERDOSE
     Route: 048
     Dates: start: 20091031, end: 20091031
  2. STILNOX [Suspect]
     Indication: MULTIPLE DRUG OVERDOSE
     Route: 048
     Dates: start: 20091031, end: 20091031
  3. LEXOMIL [Suspect]
     Indication: MULTIPLE DRUG OVERDOSE
     Route: 048
     Dates: start: 20091031, end: 20091031
  4. NORSET [Suspect]
     Indication: MULTIPLE DRUG OVERDOSE
     Route: 048
     Dates: start: 20091031, end: 20091031

REACTIONS (5)
  - COMA [None]
  - DRUG LEVEL INCREASED [None]
  - HYPOKALAEMIA [None]
  - MULTIPLE DRUG OVERDOSE INTENTIONAL [None]
  - PYREXIA [None]
